FAERS Safety Report 6980633-9 (Version None)
Quarter: 2010Q3

REPORT INFORMATION
  Report Type: 
  Country: None (occurrence: None)
  Receive Date: 20100914
  Receipt Date: 20100901
  Transmission Date: 20110219
  Serious: Yes (Disabling)
  Sender: FDA-Public Use
  Company Number: GB-WATSON-2010-11880

PATIENT
  Sex: Female

DRUGS (7)
  1. AMLODIPINE BESYLATE [Suspect]
     Indication: HYPERTENSION
     Dosage: UNK
     Route: 065
     Dates: start: 20091001
  2. AMLODIPINE BESYLATE [Suspect]
     Dosage: UNK
     Route: 065
     Dates: start: 20050101
  3. DARUNAVIR ETHANOLATE [Suspect]
     Indication: HIV INFECTION
     Dosage: 800 MG, DAILY
     Route: 048
     Dates: start: 20090920, end: 20100511
  4. RITONAVIR [Suspect]
     Indication: HIV INFECTION
     Dosage: 100 MG, DAILY
     Route: 048
     Dates: start: 20090920, end: 20100511
  5. COTRIM [Concomitant]
     Indication: INFECTION PROPHYLAXIS
     Dosage: 480 MG, DAILY
     Route: 065
     Dates: start: 20091218
  6. DAPSONE [Concomitant]
     Indication: INFECTION PROPHYLAXIS
     Dosage: 100 MG, DAILY
     Route: 048
     Dates: start: 20090920, end: 20091218
  7. KIVEXA [Concomitant]
     Indication: HIV INFECTION
     Dosage: UNK
     Route: 065
     Dates: start: 20090920, end: 20100511

REACTIONS (2)
  - DRUG INTERACTION [None]
  - OEDEMA PERIPHERAL [None]
